FAERS Safety Report 21591562 (Version 1)
Quarter: 2022Q4

REPORT INFORMATION
  Report Type: Spontaneous
  Country: HR (occurrence: HR)
  Receive Date: 20221114
  Receipt Date: 20221114
  Transmission Date: 20230113
  Serious: Yes (Other)
  Sender: FDA-Public Use
  Company Number: HR-MEDEXUS PHARMA, INC.-2022MED00440

PATIENT
  Age: 57 Year
  Sex: Male

DRUGS (2)
  1. METHOTREXATE [Suspect]
     Active Substance: METHOTREXATE
     Dosage: 15 MG, 1X/WEEK
     Route: 065
  2. PREDNISONE [Concomitant]
     Active Substance: PREDNISONE
     Dosage: 12.5 MG, 1X/DAY
     Route: 065

REACTIONS (1)
  - Dyskinesia [Recovering/Resolving]
